FAERS Safety Report 23237495 (Version 2)
Quarter: 2023Q4

REPORT INFORMATION
  Report Type: Spontaneous
  Country: JP (occurrence: JP)
  Receive Date: 20231128
  Receipt Date: 20231220
  Transmission Date: 20240110
  Serious: Yes (Other)
  Sender: FDA-Public Use
  Company Number: JP-SA-SAC20231127000601

PATIENT
  Age: 44 Year
  Sex: Male
  Weight: 68.1 kg

DRUGS (3)
  1. MYSTAN [Suspect]
     Active Substance: CLOBAZAM
     Indication: Product used for unknown indication
     Dosage: 2.5 MG, QD (1 TABLET IN THE MORNING, 0.5 TABLET AROUND NOON, 1 TABLET IN THE EVENING)
     Route: 048
     Dates: end: 20230913
  2. MYSTAN [Suspect]
     Active Substance: CLOBAZAM
     Dosage: 3 DF (1 TABLET EACH IN THE MORNING, AROUND NOON AND IN THE EVENING).
     Route: 048
  3. VALPROATE SODIUM [Concomitant]
     Active Substance: VALPROATE SODIUM
     Indication: Product used for unknown indication
     Dosage: 5 DF, QD (2 TABLETS IN THE MORNING AND 3 TABLETS IN THE EVENING)
     Route: 065

REACTIONS (5)
  - Papillary thyroid cancer [Recovering/Resolving]
  - Physical deconditioning [Recovering/Resolving]
  - Hypoaesthesia [Unknown]
  - Tremor [Unknown]
  - Therapeutic response decreased [Unknown]

NARRATIVE: CASE EVENT DATE: 20230801
